FAERS Safety Report 5455795-5 (Version None)
Quarter: 2007Q3

REPORT INFORMATION
  Report Type: 
  Country: None (occurrence: None)
  Receive Date: 20070918
  Receipt Date: 20070228
  Transmission Date: 20080115
  Serious: No
  Sender: FDA-Public Use
  Company Number: US-ASTRAZENECA-2006UW22584

PATIENT
  Age: 47 Year
  Sex: Male
  Weight: 111.4 kg

DRUGS (2)
  1. SEROQUEL [Suspect]
     Indication: DEPRESSION
     Dosage: 25 MG TO 200 MG
     Route: 048
     Dates: start: 20030101, end: 20050101
  2. RISPERDAL [Concomitant]
     Dates: start: 20030101, end: 20060101

REACTIONS (2)
  - DIABETES MELLITUS [None]
  - RENAL DISORDER [None]
